FAERS Safety Report 5941308-8 (Version None)
Quarter: 2008Q4

REPORT INFORMATION
  Report Type: 
  Country: None (occurrence: None)
  Receive Date: 20081103
  Receipt Date: 20081103
  Transmission Date: 20090506
  Serious: Yes (Other)
  Sender: FDA-Public Use
  Company Number: None

PATIENT
  Age: 51 Year
  Sex: Female
  Weight: 61.2356 kg

DRUGS (2)
  1. INDOCIN [Suspect]
     Indication: INFLAMMATION
     Dosage: 20 ML EVERY 8 HOURS PO
     Route: 048
     Dates: start: 20081028, end: 20081028
  2. INDOCIN [Suspect]
     Indication: PAIN IN EXTREMITY
     Dosage: 20 ML EVERY 8 HOURS PO
     Route: 048
     Dates: start: 20081028, end: 20081028

REACTIONS (5)
  - ANOREXIA [None]
  - DEPRESSION [None]
  - DIZZINESS [None]
  - SUICIDAL IDEATION [None]
  - THINKING ABNORMAL [None]
